FAERS Safety Report 4920280-3 (Version None)
Quarter: 2006Q1

REPORT INFORMATION
  Report Type: 
  Country: None (occurrence: None)
  Receive Date: 20060223
  Receipt Date: 20060118
  Transmission Date: 20060701
  Serious: Yes (Other)
  Sender: FDA-Public Use
  Company Number: JP-JPN-A200600249

PATIENT
  Age: 28 Year
  Sex: Female

DRUGS (7)
  1. PAXIL [Suspect]
     Indication: OBSESSIVE-COMPULSIVE DISORDER
     Route: 048
  2. AKINETON [Suspect]
     Indication: PARKINSONISM
     Dosage: 2MG TWICE PER DAY
     Route: 048
  3. RISPERDAL [Suspect]
     Indication: OBSESSIVE-COMPULSIVE DISORDER
     Route: 048
  4. ROHYPNOL [Suspect]
     Indication: OBSESSIVE-COMPULSIVE DISORDER
     Dosage: 1MG PER DAY
     Route: 048
  5. LULLAN [Concomitant]
     Route: 048
  6. SOLANAX [Concomitant]
     Route: 048
  7. METLIGINE [Concomitant]
     Indication: OBSESSIVE-COMPULSIVE DISORDER
     Route: 048

REACTIONS (2)
  - ENURESIS [None]
  - URINARY INCONTINENCE [None]
